FAERS Safety Report 9289971 (Version 1)
Quarter: 2013Q2

REPORT INFORMATION
  Report Type: Report from Study
  Country: CA (occurrence: CA)
  Receive Date: 20130515
  Receipt Date: 20130515
  Transmission Date: 20140414
  Serious: Yes (Other)
  Sender: FDA-Public Use
  Company Number: CA-JNJFOC-20130505060

PATIENT
  Age: 53 Year
  Sex: Female
  Weight: 95 kg

DRUGS (2)
  1. REMICADE [Suspect]
     Indication: RHEUMATOID ARTHRITIS
     Route: 042
     Dates: start: 200711
  2. FERROUS SULPHATE [Concomitant]
     Dosage: TAKENT AT AM AND PM
     Route: 065

REACTIONS (8)
  - Respiratory tract infection [Unknown]
  - Chronic obstructive pulmonary disease [Unknown]
  - Sleep apnoea syndrome [Unknown]
  - Asthma [Unknown]
  - Migraine [Unknown]
  - Depression [Unknown]
  - Osteoporosis [Unknown]
  - Obesity [Unknown]
